FAERS Safety Report 8334979-2 (Version None)
Quarter: 2012Q2

REPORT INFORMATION
  Report Type: 
  Country: None (occurrence: None)
  Receive Date: 20120503
  Receipt Date: 20120501
  Transmission Date: 20120825
  Serious: Yes (Hospitalization)
  Sender: FDA-Public Use
  Company Number: JP-GILEAD-E2B_00001443

PATIENT
  Sex: Male

DRUGS (15)
  1. VITAMIN B12 [Concomitant]
     Dosage: 1000 ?G, QD
     Route: 048
  2. PROMACTA [Concomitant]
     Dosage: 150 MG, QD
     Route: 048
  3. HEPSERA [Suspect]
     Dosage: 10MG ALTERNATE DAYS
     Route: 048
     Dates: start: 20100930, end: 20110709
  4. NEUROTROPIN [Concomitant]
     Dosage: 16 IU, QD
     Route: 048
  5. LAMIVUDINE (EPIVIR HBV) [Concomitant]
     Dosage: 100 MG, QD
     Route: 048
     Dates: start: 20041104
  6. RABEPRAZOLE SODIUM [Concomitant]
     Dosage: 10 MG, QD
     Route: 048
  7. DEPAS [Concomitant]
     Dosage: 1 MG, QD
     Route: 048
  8. MAGNESIUM OXIDE [Concomitant]
     Dosage: 0.5 G, QD
     Route: 048
  9. ALDACTONE [Concomitant]
     Dosage: 25 MG, QD
     Route: 048
  10. LACTITOL [Concomitant]
     Dosage: 18 G, QD
     Route: 048
  11. HEPSERA [Suspect]
     Indication: PRODUCT USED FOR UNKNOWN INDICATION
     Dosage: 10MG PER DAY
     Route: 048
     Dates: start: 20051027, end: 20100929
  12. FUROSEMIDE [Concomitant]
     Dosage: 20 MG, QD
     Route: 048
  13. LIVACT [Concomitant]
     Dosage: 8.3 G, QD
     Route: 048
  14. AMINOLEBAN EN [Concomitant]
     Dosage: 50 G, QD
     Route: 048
  15. ACTONEL [Concomitant]
     Route: 048
     Dates: start: 20100714

REACTIONS (5)
  - FANCONI SYNDROME ACQUIRED [None]
  - ELECTROLYTE IMBALANCE [None]
  - OSTEOMALACIA [None]
  - MULTIPLE FRACTURES [None]
  - RENAL IMPAIRMENT [None]
